FAERS Safety Report 15459537 (Version 1)
Quarter: 2018Q4

REPORT INFORMATION
  Report Type: Spontaneous
  Country: IN (occurrence: IN)
  Receive Date: 20181003
  Receipt Date: 20181003
  Transmission Date: 20190204
  Serious: Yes (Other)
  Sender: FDA-Public Use
  Company Number: IN-GLAXOSMITHKLINE-IN2018177934

PATIENT

DRUGS (14)
  1. VOVERAN [Suspect]
     Active Substance: DICLOFENAC SODIUM
     Indication: DIABETES MELLITUS
     Dosage: 100 MG, BID
     Route: 048
  2. VOVERAN [Suspect]
     Active Substance: DICLOFENAC SODIUM
     Indication: NASOPHARYNGITIS
  3. VOVERAN [Suspect]
     Active Substance: DICLOFENAC SODIUM
     Indication: PAIN
  4. VOVERAN [Suspect]
     Active Substance: DICLOFENAC SODIUM
     Indication: MUSCULOSKELETAL PAIN
  5. VOVERAN [Suspect]
     Active Substance: DICLOFENAC SODIUM
     Indication: ARTHRALGIA
  6. VOVERAN [Suspect]
     Active Substance: DICLOFENAC SODIUM
     Indication: PYREXIA
  7. VOVERAN [Suspect]
     Active Substance: DICLOFENAC SODIUM
     Indication: ARTHRALGIA
  8. VOVERAN [Suspect]
     Active Substance: DICLOFENAC SODIUM
     Indication: HEADACHE
  9. VOVERAN [Suspect]
     Active Substance: DICLOFENAC SODIUM
     Indication: FRACTURE
  10. VOVERAN [Suspect]
     Active Substance: DICLOFENAC SODIUM
     Indication: HYPERTENSION
     Dosage: UNK
     Route: 030
  11. VOVERAN [Suspect]
     Active Substance: DICLOFENAC SODIUM
     Indication: PAIN
  12. VOVERAN [Suspect]
     Active Substance: DICLOFENAC SODIUM
     Indication: COUGH
  13. VOVERAN [Suspect]
     Active Substance: DICLOFENAC SODIUM
     Indication: INJURY
  14. VOVERAN [Suspect]
     Active Substance: DICLOFENAC SODIUM
     Indication: BACK PAIN

REACTIONS (4)
  - Haemorrhage [Unknown]
  - Epigastric discomfort [Unknown]
  - Gastritis [Unknown]
  - Renal failure [Unknown]
